FAERS Safety Report 19611141 (Version 1)
Quarter: 2021Q3

REPORT INFORMATION
  Report Type: Spontaneous
  Country: FR (occurrence: FR)
  Receive Date: 20210726
  Receipt Date: 20210726
  Transmission Date: 20211014
  Serious: Yes (Other)
  Sender: FDA-Public Use
  Company Number: FR-PFIZER INC-2021879483

PATIENT
  Age: 37 Year
  Sex: Male

DRUGS (4)
  1. BIKTARVY [Concomitant]
     Active Substance: BICTEGRAVIR SODIUM\EMTRICITABINE\TENOFOVIR ALAFENAMIDE FUMARATE
     Indication: HIV INFECTION
     Dosage: 2 DF, 1X/DAY
     Route: 041
     Dates: start: 20210623, end: 20210625
  2. DALACINE [Suspect]
     Active Substance: CLINDAMYCIN
     Indication: SUBCUTANEOUS ABSCESS
     Dosage: 600 MG, 3X/DAY
     Route: 041
     Dates: start: 20210615, end: 20210625
  3. BACTRIM [Concomitant]
     Active Substance: SULFAMETHOXAZOLE\TRIMETHOPRIM
     Indication: HIV INFECTION
     Dosage: 3 DF, WEEKLY
     Route: 041
     Dates: start: 20210623, end: 20210625
  4. TAZOCILLINE [Suspect]
     Active Substance: PIPERACILLIN SODIUM\TAZOBACTAM SODIUM
     Indication: SUBCUTANEOUS ABSCESS
     Dosage: 4 G, 1X/DAY
     Route: 041
     Dates: start: 20210615, end: 20210625

REACTIONS (4)
  - Pyrexia [Recovered/Resolved]
  - Off label use [Unknown]
  - Rash [Recovered/Resolved]
  - Odynophagia [Recovered/Resolved]

NARRATIVE: CASE EVENT DATE: 20210615
